FAERS Safety Report 18994563 (Version 5)
Quarter: 2021Q2

REPORT INFORMATION
  Report Type: Report from Study
  Country: US (occurrence: US)
  Receive Date: 20210310
  Receipt Date: 20210417
  Transmission Date: 20210717
  Serious: Yes (Hospitalization)
  Sender: FDA-Public Use
  Company Number: NVSC2021US050261

PATIENT
  Age: 84 Year
  Sex: Female
  Weight: 56.69 kg

DRUGS (2)
  1. TREPROSTINIL. [Suspect]
     Active Substance: TREPROSTINIL
     Indication: PULMONARY ARTERIAL HYPERTENSION
     Dosage: UNK (78 NG/KG/MIN), CONTINUOUS
     Route: 042
     Dates: start: 20190430
  2. TREPROSTINIL. [Suspect]
     Active Substance: TREPROSTINIL
     Dosage: UNK (78 NG/KG/MIN), CONTINUOUS
     Route: 042
     Dates: start: 20190430

REACTIONS (4)
  - COVID-19 [Unknown]
  - Back pain [Unknown]
  - Peripheral coldness [Unknown]
  - Fall [Unknown]

NARRATIVE: CASE EVENT DATE: 20210215
